FAERS Safety Report 5135543-9 (Version None)
Quarter: 2006Q4

REPORT INFORMATION
  Report Type: 
  Country: None (occurrence: None)
  Receive Date: 20061026
  Receipt Date: 20060821
  Transmission Date: 20070319
  Serious: Yes (Hospitalization)
  Sender: FDA-Public Use
  Company Number: AU-ELI_LILLY_AND_COMPANY-AU200608006140

PATIENT
  Age: 66 Year
  Sex: Female

DRUGS (2)
  1. GEMZAR [Suspect]
     Indication: BREAST CANCER METASTATIC
     Dosage: 1000 MG/M2, OTHER
     Dates: start: 20060301
  2. PACLITAXEL [Concomitant]
     Indication: BREAST CANCER METASTATIC
     Dosage: 60 MG/M2, OTHER

REACTIONS (3)
  - GLOMERULONEPHRITIS [None]
  - LEUKOCYTOCLASTIC VASCULITIS [None]
  - RENAL TUBULAR DISORDER [None]
